FAERS Safety Report 10201351 (Version 3)
Quarter: 2014Q2

REPORT INFORMATION
  Report Type: Spontaneous
  Country: US (occurrence: US)
  Receive Date: 20140528
  Receipt Date: 20140618
  Transmission Date: 20141212
  Serious: Yes (Other)
  Sender: FDA-Public Use
  Company Number: US-DENDREON CORPORATION-2014PROUSA03747

PATIENT
  Age: 69 Year
  Sex: Male
  Weight: 121.36 kg

DRUGS (9)
  1. PROVENGE [Suspect]
     Indication: PROSTATE CANCER METASTATIC
     Dosage: 250 ML, SINGLE
     Route: 042
     Dates: start: 20140421, end: 20140421
  2. PROVENGE [Suspect]
     Dosage: 250 ML, SINGLE
     Route: 042
     Dates: start: 20140505, end: 20140505
  3. PROVENGE [Suspect]
     Dosage: 250 ML, SINGLE
     Route: 042
     Dates: start: 20140530, end: 20140530
  4. XGEVA [Concomitant]
     Indication: PROSTATE CANCER METASTATIC
     Dosage: 120 MG, EVERY 4 WEEKS
     Route: 058
  5. ZYTIGA [Concomitant]
     Indication: PROSTATE CANCER METASTATIC
     Dosage: 1 G, QD
     Route: 048
     Dates: start: 201305, end: 201404
  6. PREDNISONE [Concomitant]
     Indication: PROSTATE CANCER METASTATIC
     Dosage: 5 MG, BID
     Route: 048
     Dates: end: 201405
  7. LUPRON DEPOT-4 MONTH [Concomitant]
     Indication: PROSTATE CANCER METASTATIC
     Dosage: 30 MG, EVERY 4 MONTHS
     Route: 030
  8. METFORMIN [Concomitant]
     Indication: PRODUCT USED FOR UNKNOWN INDICATION
     Dosage: 500 MG, UNK
     Route: 048
  9. ZOMETA [Concomitant]
     Indication: PROSTATE CANCER METASTATIC
     Route: 042

REACTIONS (5)
  - Thrombophlebitis [Recovered/Resolved]
  - Contusion [Unknown]
  - Arthralgia [Unknown]
  - Hot flush [Unknown]
  - Fatigue [Unknown]
